FAERS Safety Report 8525882 (Version 2)
Quarter: 2015Q1

REPORT INFORMATION
  Report Type: Report from Study
  Country: US (occurrence: US)
  Receive Date: 20120423
  Receipt Date: 20150313
  Transmission Date: 20150721
  Serious: Yes (Death)
  Sender: FDA-Public Use
  Company Number: US-ROCHE-1060484

PATIENT
  Sex: Male
  Weight: 77.82 kg

DRUGS (9)
  1. DOXORUBICIN HYDROCHLORIDE. [Concomitant]
     Active Substance: DOXORUBICIN HYDROCHLORIDE
     Route: 048
     Dates: start: 20110516
  2. RITUXAN [Suspect]
     Active Substance: RITUXIMAB
     Dosage: 375 MG/M2 Q3W CYCLE 2,WITH 250ML NORMAL SALINE
     Route: 042
     Dates: start: 20110516
  3. DIPHENHYDRAMINE HYDROCHLORIDE. [Concomitant]
     Active Substance: DIPHENHYDRAMINE HYDROCHLORIDE
     Dosage: OVER 15MIN WITH 50ML NORMAL SALINE
     Route: 042
     Dates: start: 20110415
  4. PEGFILGRASTIM [Concomitant]
     Active Substance: PEGFILGRASTIM
     Route: 042
     Dates: start: 20110516
  5. PALONOSETRON HYDROCHLORIDE [Concomitant]
     Active Substance: PALONOSETRON HYDROCHLORIDE
     Route: 042
     Dates: start: 20110516
  6. ACETAMINOPHEN. [Concomitant]
     Active Substance: ACETAMINOPHEN
     Route: 048
     Dates: start: 20110415
  7. RITUXAN [Suspect]
     Active Substance: RITUXIMAB
     Indication: LYMPHOMA
     Dosage: 375 MG/M2 Q3W CYCLE 1,WITH 250ML NORMAL SALINE
     Route: 042
     Dates: start: 20110415
  8. VINCRISTINE SULPHATE [Concomitant]
     Active Substance: VINCRISTINE SULFATE
     Route: 042
     Dates: start: 20110516
  9. CYCLOPHOSPHAMIDE. [Concomitant]
     Active Substance: CYCLOPHOSPHAMIDE
     Dosage: FOR 45MIN WITH 500ML NORMAL SALINE
     Route: 042
     Dates: start: 20110516

REACTIONS (1)
  - Death [Fatal]
